FAERS Safety Report 19412317 (Version 1)
Quarter: 2021Q2

REPORT INFORMATION
  Report Type: Spontaneous
  Country: US (occurrence: US)
  Receive Date: 20210614
  Receipt Date: 20210614
  Transmission Date: 20210717
  Serious: No
  Sender: FDA-Public Use
  Company Number: US-BAUSCH-BL-2021-015184

PATIENT
  Age: 84 Year
  Sex: Female
  Weight: 60.33 kg

DRUGS (4)
  1. VASOTEC [Suspect]
     Active Substance: ENALAPRIL MALEATE
     Indication: HYPERTENSION
     Dosage: STARTED 1989 OR 1990
     Route: 065
     Dates: end: 20210309
  2. PFIZER?BIONTECH COVID?19 VACCINE [Suspect]
     Active Substance: TOZINAMERAN
     Indication: PROPHYLAXIS
     Dosage: INJECTED IN LEFT ARM, UNABLE TO CONFIRM IF IT WAS GIVEN IN THE MUSCLE. UNKNOWN DOSE.
     Route: 065
     Dates: start: 20210122
  3. VASOTEC [Suspect]
     Active Substance: ENALAPRIL MALEATE
     Dosage: 5MG IN THE MORNING AND 5MG IN THE EVENING, COUNT SIZE 90 TABLETS
     Route: 065
     Dates: start: 20210325
  4. PFIZER?BIONTECH COVID?19 VACCINE [Suspect]
     Active Substance: TOZINAMERAN
     Route: 065
     Dates: start: 20210212

REACTIONS (1)
  - Blood pressure increased [Recovering/Resolving]

NARRATIVE: CASE EVENT DATE: 20210325
